FAERS Safety Report 12919286 (Version 5)
Quarter: 2017Q4

REPORT INFORMATION
  Report Type: Other
  Country: JP (occurrence: JP)
  Receive Date: 20161108
  Receipt Date: 20171212
  Transmission Date: 20180320
  Serious: Yes (Life-Threatening, Hospitalization)
  Sender: FDA-Public Use
  Company Number: JP-ACTELION-A-CH2016-144884

PATIENT
  Age: 67 Year
  Sex: Female
  Weight: 62 kg

DRUGS (25)
  1. EPOPROSTENOL ACT [Suspect]
     Active Substance: EPOPROSTENOL
     Indication: PULMONARY ARTERIAL HYPERTENSION
     Dosage: 7 NG/KG, PER MIN
     Route: 042
     Dates: start: 20160510
  2. EPOPROSTENOL ACT [Suspect]
     Active Substance: EPOPROSTENOL
     Dosage: 6 NG/KG, PER MIN
     Route: 042
     Dates: start: 20160610
  3. WARFARIN [Concomitant]
     Active Substance: WARFARIN
  4. EPOPROSTENOL ACT [Suspect]
     Active Substance: EPOPROSTENOL
     Dosage: 5 NG/KG, PER MIN
     Route: 042
     Dates: start: 20160613, end: 20160613
  5. EPOPROSTENOL ACT [Suspect]
     Active Substance: EPOPROSTENOL
     Dosage: 1 NG/KG, PER MIN
     Route: 042
     Dates: start: 20160617, end: 20160618
  6. OMEPRAZOLE SODIUM [Concomitant]
     Active Substance: OMEPRAZOLE SODIUM
     Indication: PRODUCT USED FOR UNKNOWN INDICATION
  7. DIART [Concomitant]
     Active Substance: AZOSEMIDE
     Indication: PRODUCT USED FOR UNKNOWN INDICATION
  8. LANSOPRAZOLE. [Concomitant]
     Active Substance: LANSOPRAZOLE
     Indication: PRODUCT USED FOR UNKNOWN INDICATION
  9. ATORVASTATIN [Concomitant]
     Active Substance: ATORVASTATIN
  10. EPOPROSTENOL ACT [Suspect]
     Active Substance: EPOPROSTENOL
     Dosage: 5 NG/KG, PER MIN
     Route: 042
     Dates: start: 20160509, end: 20160509
  11. EPOPROSTENOL ACT [Suspect]
     Active Substance: EPOPROSTENOL
     Dosage: 4 NG/KG, PER MIN
     Route: 042
     Dates: start: 20160614, end: 20160614
  12. EPOPROSTENOL ACT [Suspect]
     Active Substance: EPOPROSTENOL
     Dosage: 2 NG/KG, PER MIN
     Route: 042
     Dates: start: 20160507, end: 20160507
  13. EPOPROSTENOL ACT [Suspect]
     Active Substance: EPOPROSTENOL
     Dosage: 3 NG/KG, PER MIN
     Route: 042
     Dates: start: 20160615, end: 20160615
  14. REVATIO [Suspect]
     Active Substance: SILDENAFIL CITRATE
     Indication: PULMONARY ARTERIAL HYPERTENSION
     Dosage: 20 MG, TID
     Route: 048
     Dates: start: 20160506
  15. SLOW-K [Concomitant]
     Active Substance: POTASSIUM CHLORIDE
     Indication: PRODUCT USED FOR UNKNOWN INDICATION
  16. HEPARIN SODIUM. [Suspect]
     Active Substance: HEPARIN SODIUM
     Indication: PULMONARY ARTERIAL HYPERTENSION
     Dosage: UNK
     Route: 042
     Dates: start: 20160506, end: 20160519
  17. VASOLAN [Concomitant]
     Active Substance: VERAPAMIL HYDROCHLORIDE
  18. OPSUMIT [Suspect]
     Active Substance: MACITENTAN
     Indication: PULMONARY ARTERIAL HYPERTENSION
     Dosage: 10 MG, OD
     Route: 048
     Dates: start: 20160506
  19. EPOPROSTENOL ACT [Suspect]
     Active Substance: EPOPROSTENOL
     Dosage: 1 NG/KG, PER MIN
     Route: 042
     Dates: start: 20160506, end: 20160506
  20. EPOPROSTENOL ACT [Suspect]
     Active Substance: EPOPROSTENOL
     Dosage: 3 NG/KG, PER MIN
     Route: 042
     Dates: start: 20160508, end: 20160508
  21. DOBUTAMINE [Concomitant]
     Active Substance: DOBUTAMINE\DOBUTAMINE HYDROCHLORIDE
     Indication: PRODUCT USED FOR UNKNOWN INDICATION
  22. SPIRONOLACTONE. [Concomitant]
     Active Substance: SPIRONOLACTONE
     Indication: PRODUCT USED FOR UNKNOWN INDICATION
  23. SODIUM FERRIC CITRATE [Concomitant]
     Active Substance: FERRIC SODIUM CITRATE
     Indication: PRODUCT USED FOR UNKNOWN INDICATION
  24. EPOPROSTENOL ACT [Suspect]
     Active Substance: EPOPROSTENOL
     Dosage: 2 NG/KG, PER MIN
     Route: 042
     Dates: start: 20160616, end: 20160616
  25. BERASUS [Concomitant]
     Active Substance: BERAPROST SODIUM

REACTIONS (6)
  - Cerebral infarction [Recovered/Resolved with Sequelae]
  - Paresis [Recovered/Resolved with Sequelae]
  - Heparin-induced thrombocytopenia [Recovered/Resolved]
  - Oxygen saturation decreased [Recovered/Resolved]
  - Pulmonary oedema [Recovered/Resolved]
  - Chest X-ray abnormal [Recovered/Resolved]

NARRATIVE: CASE EVENT DATE: 20160516
